FAERS Safety Report 24910281 (Version 1)
Quarter: 2025Q1

REPORT INFORMATION
  Report Type: Spontaneous
  Country: GB (occurrence: GB)
  Receive Date: 20250131
  Receipt Date: 20250131
  Transmission Date: 20250408
  Serious: Yes (Hospitalization)
  Sender: MYLAN
  Company Number: GB-MYLANLABS-2025M1007755

PATIENT
  Sex: Female

DRUGS (1)
  1. CLOZARIL [Suspect]
     Active Substance: CLOZAPINE
     Indication: Schizophrenia
     Route: 048
     Dates: start: 20090112, end: 20250124

REACTIONS (5)
  - Decreased appetite [Unknown]
  - Memory impairment [Unknown]
  - Dyspnoea [Unknown]
  - Confusional state [Unknown]
  - Lower respiratory tract infection [Unknown]
